FAERS Safety Report 11228275 (Version 2)
Quarter: 2015Q3

REPORT INFORMATION
  Report Type: Report from Study
  Country: NL (occurrence: NL)
  Receive Date: 20150630
  Receipt Date: 20150720
  Transmission Date: 20151125
  Serious: Yes (Hospitalization, Other)
  Sender: FDA-Public Use
  Company Number: NL-AMGEN-NLDSL2015062140

PATIENT
  Age: 41 Year
  Sex: Female

DRUGS (1)
  1. XGEVA [Suspect]
     Active Substance: DENOSUMAB
     Indication: PROPHYLAXIS
     Dosage: 1.70 ML (120 MG), Q4WK
     Route: 058

REACTIONS (2)
  - Hospitalisation [Unknown]
  - Ascites [Unknown]

NARRATIVE: CASE EVENT DATE: 20150623
